FAERS Safety Report 14023705 (Version 1)
Quarter: 2017Q3

REPORT INFORMATION
  Report Type: Spontaneous
  Country: US (occurrence: US)
  Receive Date: 20170928
  Receipt Date: 20170928
  Transmission Date: 20171128
  Serious: No
  Sender: FDA-Public Use
  Company Number: US-SA-2017SA030071

PATIENT
  Age: 42 Year
  Sex: Female

DRUGS (9)
  1. AUBAGIO [Suspect]
     Active Substance: TERIFLUNOMIDE
     Indication: MULTIPLE SCLEROSIS
     Route: 048
     Dates: start: 201612
  2. AMPYRA [Concomitant]
     Active Substance: DALFAMPRIDINE
  3. TIZANIDINE HYDROCHLORIDE. [Concomitant]
     Active Substance: TIZANIDINE HYDROCHLORIDE
  4. PANTOPRAZOLE [Concomitant]
     Active Substance: PANTOPRAZOLE
  5. TOPAMAX [Concomitant]
     Active Substance: TOPIRAMATE
  6. CALCIUM [Concomitant]
     Active Substance: CALCIUM
  7. VITAMIN D [Concomitant]
     Active Substance: CHOLECALCIFEROL
  8. BACLOFEN. [Concomitant]
     Active Substance: BACLOFEN
  9. VITAMIN B [Concomitant]
     Active Substance: VITAMIN B

REACTIONS (4)
  - Myalgia [Unknown]
  - Upper respiratory tract infection [Unknown]
  - Headache [Unknown]
  - Cough [Unknown]

NARRATIVE: CASE EVENT DATE: 2017
